FAERS Safety Report 8710902 (Version 3)
Quarter: 2013Q4

REPORT INFORMATION
  Report Type: Spontaneous
  Country: TR (occurrence: None)
  Receive Date: 20120723
  Receipt Date: 20131224
  Transmission Date: 20140711
  Serious: Yes (Life-Threatening)
  Sender: FDA-Public Use
  Company Number: EUS-2012-00476

PATIENT
  Age: 9 Year
  Sex: Female

DRUGS (7)
  1. ASPARAGINASE [Suspect]
     Indication: T-CELL TYPE ACUTE LEUKAEMIA
     Route: 042
  2. METHOTREXATE (METHOTREXATE) (METHOTREXATE) [Concomitant]
  3. VINCRISTINE (VINCRISTINE) (VINCRISTINE) [Concomitant]
  4. DAUNORUBICIN [Concomitant]
  5. CORTICOSTEROIDS (CORTICOSTEROID NOS) (CORTICOSTEROID NOS) [Concomitant]
  6. ARA-C (CYTARABINE) (CYTARABINE) [Concomitant]
  7. HYDROCORTISONE (HYDROCORTISONE) (HYDROCORTISONE) [Concomitant]

REACTIONS (37)
  - Leukoencephalopathy [None]
  - Superior sagittal sinus thrombosis [None]
  - Multi-organ failure [None]
  - Quadriplegia [None]
  - Loss of consciousness [None]
  - Hypertension [None]
  - Pancytopenia [None]
  - Tachycardia [None]
  - Transaminases increased [None]
  - Blood triglycerides increased [None]
  - Hyperlipidaemia [None]
  - Hypercholesterolaemia [None]
  - Mydriasis [None]
  - Pupillary reflex impaired [None]
  - Areflexia [None]
  - Jaundice [None]
  - Haematochezia [None]
  - Prothrombin time prolonged [None]
  - Activated partial thromboplastin time prolonged [None]
  - Haemorrhagic diathesis [None]
  - Hepatomegaly [None]
  - Blood alkaline phosphatase increased [None]
  - Blood glucose increased [None]
  - Blood bilirubin increased [None]
  - Bilirubin conjugated increased [None]
  - Hypoalbuminaemia [None]
  - Somnolence [None]
  - Bladder dysfunction [None]
  - Abnormal faeces [None]
  - Diabetes mellitus [None]
  - Dyspnoea [None]
  - Staphylococcal sepsis [None]
  - Oedema [None]
  - Cardiac disorder [None]
  - Respiratory disorder [None]
  - Lung infiltration [None]
  - Metabolic disorder [None]
